FAERS Safety Report 25731436 (Version 1)
Quarter: 2025Q3

REPORT INFORMATION
  Report Type: Spontaneous
  Country: US (occurrence: None)
  Receive Date: 20250827
  Receipt Date: 20250827
  Transmission Date: 20251021
  Serious: Yes (Other)
  Sender: FDA-CTU
  Company Number: None

PATIENT
  Age: 34 Year
  Sex: Male
  Weight: 67.5 kg

DRUGS (10)
  1. CABENUVA [Suspect]
     Active Substance: CABOTEGRAVIR\RILPIVIRINE
     Indication: HIV infection
     Dosage: OTHER QUANTITY : 2 INJECTION(S);?OTHER FREQUENCY : EVERY 2 MONTHS;?
     Route: 030
     Dates: start: 20250826
  2. Symbocort [Concomitant]
  3. DEPAKOTE [Concomitant]
     Active Substance: DIVALPROEX SODIUM
  4. LAMICTAL [Concomitant]
     Active Substance: LAMOTRIGINE
  5. SINGULAIR [Concomitant]
     Active Substance: MONTELUKAST SODIUM
  6. Meloxicam for Migraines [Concomitant]
  7. Monoatoic Gold [Concomitant]
  8. COLLOIDAL SILVER [Concomitant]
     Active Substance: SILVER
  9. Gluthanoine [Concomitant]
  10. NAD+ [Concomitant]

REACTIONS (3)
  - Loss of consciousness [None]
  - Vomiting [None]
  - Blood pressure decreased [None]

NARRATIVE: CASE EVENT DATE: 20250826
